FAERS Safety Report 5675057-0 (Version None)
Quarter: 2008Q2

REPORT INFORMATION
  Report Type: 
  Country: None (occurrence: None)
  Receive Date: 20080303
  Receipt Date: 20070823
  Transmission Date: 20081010
  Serious: Yes (Hospitalization, Other)
  Sender: FDA-Public Use
  Company Number: RB-7798-2007

PATIENT
  Age: 1 Day
  Sex: Male
  Weight: 1.3 kg

DRUGS (2)
  1. SUBUTEX [Suspect]
     Indication: DRUG USE FOR UNKNOWN INDICATION
     Dosage: 16 MG TRANSPLACENTAL
     Route: 064
     Dates: end: 20070801
  2. METHADON HCL TAB [Concomitant]

REACTIONS (5)
  - DIARRHOEA [None]
  - DRUG WITHDRAWAL SYNDROME NEONATAL [None]
  - INSOMNIA [None]
  - PREMATURE BABY [None]
  - TREMOR [None]
